FAERS Safety Report 20775327 (Version 1)
Quarter: 2022Q2

REPORT INFORMATION
  Report Type: Spontaneous
  Country: US (occurrence: None)
  Receive Date: 20220502
  Receipt Date: 20220502
  Transmission Date: 20220720
  Serious: Yes (Hospitalization, Disabling)
  Sender: FDA-Public Use
  Company Number: None

PATIENT
  Age: 8 Year
  Sex: Male
  Weight: 27.9 kg

DRUGS (1)
  1. QELBREE [Suspect]
     Active Substance: VILOXAZINE HYDROCHLORIDE
     Indication: Attention deficit hyperactivity disorder
     Dosage: OTHER QUANTITY : 1 TABLET(S);?FREQUENCY : DAILY;?
     Route: 048
     Dates: start: 20220401, end: 20220415

REACTIONS (8)
  - Abnormal behaviour [None]
  - Abnormal dreams [None]
  - Aggression [None]
  - Decreased appetite [None]
  - Speech disorder [None]
  - Homicidal ideation [None]
  - Poisoning [None]
  - Drug ineffective [None]

NARRATIVE: CASE EVENT DATE: 20220401
